FAERS Safety Report 24152287 (Version 1)
Quarter: 2024Q3

REPORT INFORMATION
  Report Type: Spontaneous
  Country: US (occurrence: US)
  Receive Date: 20240730
  Receipt Date: 20240730
  Transmission Date: 20241016
  Serious: No
  Sender: PFIZER
  Company Number: US-PFIZER INC-202400224239

PATIENT
  Age: 38 Year
  Sex: Male

DRUGS (12)
  1. HYDROXYZINE PAMOATE [Suspect]
     Active Substance: HYDROXYZINE PAMOATE
     Indication: Throat irritation
     Dosage: UNK
  2. HYDROXYZINE PAMOATE [Suspect]
     Active Substance: HYDROXYZINE PAMOATE
     Indication: Rash
  3. HYDROXYZINE PAMOATE [Suspect]
     Active Substance: HYDROXYZINE PAMOATE
     Indication: Urticaria
  4. ALBUTEROL SULFATE [Suspect]
     Active Substance: ALBUTEROL SULFATE
     Indication: Throat irritation
     Dosage: UNK
  5. ALBUTEROL SULFATE [Suspect]
     Active Substance: ALBUTEROL SULFATE
     Indication: Rash
  6. ALBUTEROL SULFATE [Suspect]
     Active Substance: ALBUTEROL SULFATE
     Indication: Urticaria
  7. DEXAMETHASONE [Suspect]
     Active Substance: DEXAMETHASONE
     Indication: Throat irritation
     Dosage: UNK
  8. DEXAMETHASONE [Suspect]
     Active Substance: DEXAMETHASONE
     Indication: Rash
  9. DEXAMETHASONE [Suspect]
     Active Substance: DEXAMETHASONE
     Indication: Urticaria
  10. FAMOTIDINE [Suspect]
     Active Substance: FAMOTIDINE
     Indication: Throat irritation
     Dosage: UNK
  11. FAMOTIDINE [Suspect]
     Active Substance: FAMOTIDINE
     Indication: Rash
  12. FAMOTIDINE [Suspect]
     Active Substance: FAMOTIDINE
     Indication: Urticaria

REACTIONS (1)
  - Therapeutic product effect incomplete [Unknown]
